FAERS Safety Report 4366979-1 (Version None)
Quarter: 2004Q2

REPORT INFORMATION
  Report Type: 
  Country: None (occurrence: None)
  Receive Date: 20040528
  Receipt Date: 20040517
  Transmission Date: 20050107
  Serious: Yes (Other)
  Sender: FDA-Public Use
  Company Number: PHEH2004US05486

PATIENT
  Age: 45 Year
  Sex: Female

DRUGS (9)
  1. ZOMETA [Suspect]
     Indication: METASTASES TO BONE
     Dosage: 4 MG MONTHLY
     Route: 042
     Dates: start: 20010928, end: 20031125
  2. LUPRON [Concomitant]
     Indication: BREAST CANCER
     Dosage: 7.5 MG MONTHLY
     Dates: start: 20020926, end: 20030129
  3. FASLODEX [Concomitant]
     Indication: BREAST CANCER
     Dosage: 250 MG MONTHLY
     Dates: start: 20020926, end: 20030129
  4. BEVACIZUMAB [Concomitant]
     Indication: BREAST CANCER
     Dosage: 640 MG ONE DOSE EVERY 3 WEEKS
     Route: 042
     Dates: start: 20030610, end: 20031025
  5. PACLITAXEL [Concomitant]
     Indication: BREAST CANCER
     Dosage: 150.3 MG EVERY 3 WEEK
     Route: 042
     Dates: start: 20030610, end: 20031028
  6. DEXAMETHASONE [Concomitant]
     Indication: PROPHYLAXIS
     Dosage: 8 MG EVERY 3 WEEK
     Route: 042
     Dates: start: 20030610, end: 20031028
  7. XELODA [Concomitant]
     Indication: BREAST CANCER
     Dosage: 500 MG BID FOR 14 DAYS
     Dates: start: 20021024, end: 20030120
  8. MEGACE [Concomitant]
  9. ARIMIDEX [Concomitant]

REACTIONS (7)
  - ABDOMINAL HYSTERECTOMY [None]
  - MOUTH INJURY [None]
  - OSTEONECROSIS [None]
  - PAIN [None]
  - SALPINGO-OOPHORECTOMY BILATERAL [None]
  - TOOTH ABSCESS [None]
  - TOOTH EXTRACTION [None]
